FAERS Safety Report 8918448 (Version 3)
Quarter: 2013Q1

REPORT INFORMATION
  Report Type: Spontaneous
  Country: US (occurrence: US)
  Receive Date: 20121120
  Receipt Date: 20130205
  Transmission Date: 20140127
  Serious: No
  Sender: FDA-Public Use
  Company Number: US-ASTRAZENECA-2012SE17733

PATIENT
  Age: 45 Year
  Sex: Male

DRUGS (2)
  1. RHINOCORT AQUA [Suspect]
     Route: 045
  2. NEXIUM [Suspect]
     Route: 048

REACTIONS (6)
  - Dyspepsia [Unknown]
  - Oropharyngeal pain [Unknown]
  - Stress [Unknown]
  - Dysphonia [Unknown]
  - Gastrooesophageal reflux disease [Unknown]
  - Drug dose omission [Unknown]
